FAERS Safety Report 9121825 (Version 1)
Quarter: 2013Q1

REPORT INFORMATION
  Report Type: Spontaneous
  Country: FR (occurrence: FR)
  Receive Date: 20130227
  Receipt Date: 20130227
  Transmission Date: 20140127
  Serious: Yes (Death, Hospitalization)
  Sender: FDA-Public Use
  Company Number: 2013SP002567

PATIENT
  Age: 75 Year
  Sex: Female

DRUGS (3)
  1. FLUOROURACIL [Suspect]
     Indication: PRODUCT USED FOR UNKNOWN INDICATION
     Route: 034
     Dates: start: 20121227
  2. FLUOROURACIL [Suspect]
     Indication: PRODUCT USED FOR UNKNOWN INDICATION
     Route: 034
     Dates: start: 20121227
  3. OXALIPLATIN [Suspect]
     Indication: PRODUCT USED FOR UNKNOWN INDICATION
     Route: 034
     Dates: start: 20121227

REACTIONS (6)
  - Bone marrow failure [Fatal]
  - Septic shock [Fatal]
  - Multi-organ failure [Fatal]
  - Pleurisy [Recovered/Resolved with Sequelae]
  - Renal failure [Recovered/Resolved with Sequelae]
  - Pleural effusion [Unknown]
